FAERS Safety Report 12902062 (Version 1)
Quarter: 2016Q4

REPORT INFORMATION
  Report Type: Other
  Country: None (occurrence: DE)
  Receive Date: 20161102
  Receipt Date: 20161102
  Transmission Date: 20170207
  Serious: Yes (Death, Other)
  Sender: FDA-Public Use
  Company Number: DE-VELOXIS PHARMACEUTICALS-1059152

PATIENT
  Age: 65 Year
  Sex: Male

DRUGS (12)
  1. 5-AZACYTIDINE [Suspect]
     Active Substance: AZACITIDINE
  2. ENVARSUS XR [Suspect]
     Active Substance: TACROLIMUS
     Indication: IMMUNOSUPPRESSANT DRUG THERAPY
  3. HYDROXYUREA. [Suspect]
     Active Substance: HYDROXYUREA
  4. FLUDARABINE [Suspect]
     Active Substance: FLUDARABINE PHOSPHATE
  5. VORICONAZOLE. [Suspect]
     Active Substance: VORICONAZOLE
  6. MYCOPHENOLIC ACID. [Suspect]
     Active Substance: MYCOPHENOLIC ACID
  7. GANCICLOVIR. [Concomitant]
     Active Substance: GANCICLOVIR
  8. FOSCAVIR [Concomitant]
     Active Substance: FOSCARNET SODIUM
  9. CYCLOPHOSPHAMIDE. [Suspect]
     Active Substance: CYCLOPHOSPHAMIDE
  10. CYTARABINE. [Suspect]
     Active Substance: CYTARABINE
  11. AMSACRINE [Suspect]
     Active Substance: AMSACRINE
  12. CASPOFUNGIN [Suspect]
     Active Substance: CASPOFUNGIN

REACTIONS (3)
  - Encephalitis fungal [Fatal]
  - Cytomegalovirus infection [Unknown]
  - Off label use [Unknown]
